FAERS Safety Report 9527963 (Version 1)
Quarter: 2013Q1

REPORT INFORMATION
  Report Type: Spontaneous
  Country: US (occurrence: None)
  Receive Date: 20130313
  Receipt Date: 20130313
  Transmission Date: 20140127
  Serious: No
  Sender: FDA-Public Use
  Company Number: 1000028343

PATIENT
  Age: 33 Year
  Sex: Female

DRUGS (3)
  1. SAVELLA [Suspect]
     Indication: TRIGEMINAL NEURALGIA
     Dosage: 12.5 MG (12.5 MG,1 IN 1 D), ORAL
     Route: 048
     Dates: start: 20120112, end: 20120112
  2. SAVELLA [Suspect]
     Indication: TRIGEMINAL NEURALGIA
     Dosage: 50 MG, (25 MG,2 IN 1 D), ORAL
     Route: 048
     Dates: start: 20120115, end: 20120116
  3. TEGRETOL (CARBAMAZEPINE) (CARBAMAZEPINE) [Concomitant]

REACTIONS (1)
  - Rash [None]
